FAERS Safety Report 19823729 (Version 1)
Quarter: 2021Q3

REPORT INFORMATION
  Report Type: Other
  Country: IN (occurrence: IN)
  Receive Date: 20210913
  Receipt Date: 20210913
  Transmission Date: 20211014
  Serious: Yes (Other)
  Sender: FDA-Public Use
  Company Number: IN-ROCHE-2787948

PATIENT

DRUGS (5)
  1. RITUXIMAB. [Suspect]
     Active Substance: RITUXIMAB
     Indication: B-CELL TYPE ACUTE LEUKAEMIA
     Route: 042
  2. ACYCLOVIR. [Concomitant]
     Active Substance: ACYCLOVIR
  3. BORTEZOMIB. [Suspect]
     Active Substance: BORTEZOMIB
     Indication: B-CELL TYPE ACUTE LEUKAEMIA
     Route: 058
  4. DIPHENHYDRAMINE. [Concomitant]
     Active Substance: DIPHENHYDRAMINE
  5. ACETAMINOPHEN. [Concomitant]
     Active Substance: ACETAMINOPHEN

REACTIONS (17)
  - Pneumonia pseudomonal [Unknown]
  - Tumour lysis syndrome [Unknown]
  - Pseudomonas infection [Unknown]
  - Klebsiella infection [Unknown]
  - Systemic candida [Unknown]
  - Escherichia infection [Unknown]
  - Burkholderia cepacia complex infection [Unknown]
  - Streptococcal infection [Unknown]
  - Cardiac infection [Unknown]
  - Central nervous system haemorrhage [Unknown]
  - Intestinal obstruction [Unknown]
  - Febrile neutropenia [Unknown]
  - Pneumothorax [Unknown]
  - Pancreatitis [Unknown]
  - Arrhythmia [Unknown]
  - Gastrointestinal haemorrhage [Unknown]
  - Pneumonia fungal [Unknown]
